FAERS Safety Report 4326849-1 (Version None)
Quarter: 2004Q1

REPORT INFORMATION
  Report Type: 
  Country: None (occurrence: None)
  Receive Date: 20040330
  Receipt Date: 20040330
  Transmission Date: 20041129
  Serious: Yes (Hospitalization)
  Sender: FDA-Public Use
  Company Number: None

PATIENT
  Sex: Female
  Weight: 53.0709 kg

DRUGS (9)
  1. CYTOXAN [Suspect]
     Indication: NON-HODGKIN'S LYMPHOMA
     Dates: start: 20040319
  2. DOXORUBICIN HCL [Suspect]
     Indication: NON-HODGKIN'S LYMPHOMA
     Dosage: 75 MG IV
     Route: 042
     Dates: start: 20040319
  3. VINCRISTINE [Suspect]
     Indication: NON-HODGKIN'S LYMPHOMA
     Dosage: 2 IV
     Route: 042
     Dates: start: 20040319
  4. PREDNISONE [Suspect]
     Indication: NON-HODGKIN'S LYMPHOMA
     Dosage: 100 PO
     Route: 048
     Dates: start: 20040319, end: 20040323
  5. RITUXIMAB [Suspect]
     Indication: NON-HODGKIN'S LYMPHOMA
     Dosage: 563 MG IV
     Route: 042
     Dates: start: 20040319
  6. VELCADE [Suspect]
     Indication: NON-HODGKIN'S LYMPHOMA
     Dosage: 1.0 IV
     Route: 042
     Dates: start: 20040319
  7. SYNTHORID [Concomitant]
  8. ZYRTEC [Concomitant]
  9. NEXIUM [Concomitant]

REACTIONS (1)
  - FEBRILE NEUTROPENIA [None]
